FAERS Safety Report 23229192 (Version 1)
Quarter: 2023Q4

REPORT INFORMATION
  Report Type: Spontaneous
  Country: US (occurrence: US)
  Receive Date: 20231127
  Receipt Date: 20231127
  Transmission Date: 20240110
  Serious: No
  Sender: FDA-Public Use
  Company Number: US-AUROBINDO-AUR-APL-2022-048773

PATIENT

DRUGS (2)
  1. LOSARTAN POTASSIUM [Suspect]
     Active Substance: LOSARTAN POTASSIUM
     Indication: Hypertension
     Dosage: UNK UNK, TWO TIMES A DAY (ONE IN THE MORNING ONE IN THE EVENING)
     Route: 048
  2. NEXIUM [Concomitant]
     Active Substance: ESOMEPRAZOLE MAGNESIUM
     Indication: Product used for unknown indication
     Dosage: 20 MILLIGRAM, ONCE EVERY 3 DAYS
     Route: 065

REACTIONS (5)
  - Nervous system disorder [Unknown]
  - Head discomfort [Unknown]
  - Abdominal discomfort [Unknown]
  - Product after taste [Unknown]
  - Product odour abnormal [Unknown]
